FAERS Safety Report 5827141-6 (Version None)
Quarter: 2008Q3

REPORT INFORMATION
  Report Type: 
  Country: None (occurrence: None)
  Receive Date: 20080730
  Receipt Date: 20080724
  Transmission Date: 20090109
  Serious: Yes (Hospitalization)
  Sender: FDA-Public Use
  Company Number: US-WYE-H05247508

PATIENT
  Sex: Male
  Weight: 75.82 kg

DRUGS (2)
  1. TYGACIL [Suspect]
     Indication: ABDOMINAL INFECTION
     Route: 042
  2. TYGACIL [Suspect]
     Indication: DIVERTICULITIS

REACTIONS (1)
  - CHOLESTASIS [None]
